FAERS Safety Report 11074480 (Version 5)
Quarter: 2016Q2

REPORT INFORMATION
  Report Type: Report from Study
  Country: BR (occurrence: BR)
  Receive Date: 20150429
  Receipt Date: 20160407
  Transmission Date: 20160815
  Serious: Yes (Other)
  Sender: FDA-Public Use
  Company Number: PHHY2015BR046552

PATIENT
  Age: 87 Year
  Sex: Female
  Weight: 52 kg

DRUGS (1)
  1. ACLASTA [Suspect]
     Active Substance: ZOLEDRONIC ACID
     Indication: OSTEOPOROSIS
     Dosage: 5 MG, Q12MO
     Route: 042
     Dates: start: 20150318

REACTIONS (12)
  - Weight decreased [Recovering/Resolving]
  - Retching [Recovered/Resolved]
  - Dizziness [Recovering/Resolving]
  - Pain [Recovering/Resolving]
  - Vomiting [Recovered/Resolved]
  - Platelet count decreased [Unknown]
  - Feeling cold [Unknown]
  - Hypophagia [Recovering/Resolving]
  - Chills [Recovered/Resolved]
  - Pain in extremity [Unknown]
  - Dengue fever [Recovered/Resolved]
  - Asthenia [Recovering/Resolving]

NARRATIVE: CASE EVENT DATE: 20150318
